FAERS Safety Report 5860812-4 (Version None)
Quarter: 2008Q3

REPORT INFORMATION
  Report Type: 
  Country: None (occurrence: None)
  Receive Date: 20080827
  Receipt Date: 20080122
  Transmission Date: 20090109
  Serious: No
  Sender: FDA-Public Use
  Company Number: US-ABBOTT-07P-163-0426057-00

PATIENT
  Sex: Female
  Weight: 60.382 kg

DRUGS (5)
  1. COATED PDS [Suspect]
     Indication: BLOOD CHOLESTEROL INCREASED
     Route: 048
     Dates: start: 20071114
  2. RALOXIFENE HYDROCHLORIDE [Concomitant]
     Indication: OSTEOPENIA
     Dates: start: 20050101
  3. ATENOLOL [Concomitant]
     Indication: HYPERTENSION
     Dates: start: 19950101
  4. IBUPROFEN [Concomitant]
     Indication: PROPHYLAXIS
     Dates: start: 20071115
  5. IBUPROFEN [Concomitant]
     Indication: ADVERSE DRUG REACTION

REACTIONS (2)
  - BURNING SENSATION [None]
  - PALPITATIONS [None]
